FAERS Safety Report 10150077 (Version 1)
Quarter: 2014Q2

REPORT INFORMATION
  Report Type: Spontaneous
  Country: GB (occurrence: GB)
  Receive Date: 20140502
  Receipt Date: 20140502
  Transmission Date: 20141212
  Serious: Yes (Hospitalization, Other)
  Sender: FDA-Public Use
  Company Number: GB-WATSON-2014-08654

PATIENT
  Age: 78 Year
  Sex: Female

DRUGS (1)
  1. OMEPRAZOLE (UNKNOWN) [Suspect]
     Indication: SMALL INTESTINE CARCINOMA
     Dosage: 20 MG, DAILY
     Route: 048
     Dates: start: 201401, end: 20140404

REACTIONS (2)
  - Hypomagnesaemia [Recovering/Resolving]
  - Hypocalcaemia [Recovering/Resolving]
